FAERS Safety Report 17324599 (Version 1)
Quarter: 2020Q1

REPORT INFORMATION
  Report Type: Spontaneous
  Country: US (occurrence: US)
  Receive Date: 20200127
  Receipt Date: 20200127
  Transmission Date: 20200409
  Serious: Yes (Hospitalization)
  Sender: FDA-Public Use
  Company Number: US-ELI_LILLY_AND_COMPANY-US202001008208

PATIENT
  Age: 18 Year
  Sex: Male

DRUGS (1)
  1. HUMALOG [Suspect]
     Active Substance: INSULIN LISPRO
     Indication: TYPE 1 DIABETES MELLITUS
     Dosage: UNK, PRN (SLIDING SCALE)
     Route: 058
     Dates: start: 2013

REACTIONS (8)
  - Insulin resistance [Unknown]
  - Depression [Unknown]
  - Wound infection [Recovered/Resolved]
  - Diabetic ketoacidosis [Recovering/Resolving]
  - Wound [Recovered/Resolved]
  - Infection [Recovered/Resolved]
  - Personality change [Recovering/Resolving]
  - Blood glucose increased [Recovering/Resolving]

NARRATIVE: CASE EVENT DATE: 2017
